FAERS Safety Report 7119067-5 (Version None)
Quarter: 2010Q4

REPORT INFORMATION
  Report Type: 
  Country: None (occurrence: None)
  Receive Date: 20101123
  Receipt Date: 20101118
  Transmission Date: 20110411
  Serious: Yes (Hospitalization)
  Sender: FDA-Public Use
  Company Number: A0894598A

PATIENT

DRUGS (1)
  1. ALTABAX [Suspect]
     Indication: IMPETIGO
     Route: 061

REACTIONS (2)
  - CHEILITIS [None]
  - LIP SWELLING [None]
